FAERS Safety Report 19474885 (Version 2)
Quarter: 2024Q2

REPORT INFORMATION
  Report Type: Spontaneous
  Country: US (occurrence: US)
  Receive Date: 20210629
  Receipt Date: 20240416
  Transmission Date: 20240716
  Serious: No
  Sender: FDA-Public Use
  Company Number: US-SA-SAC20210624000638

PATIENT
  Age: 13 Year
  Sex: Female

DRUGS (5)
  1. LUMIZYME [Suspect]
     Active Substance: ALGLUCOSIDASE ALFA
     Indication: Glycogen storage disease type II
     Dosage: UNK
     Route: 042
     Dates: start: 20210323, end: 202104
  2. LUMIZYME [Suspect]
     Active Substance: ALGLUCOSIDASE ALFA
     Dosage: MISSED DOSE ON 05/13/2021 PATIENT RECEIVED ONLY ONE DOSE ON THE MONTH OF MAY 2021; THIS WAS DONE ON
     Route: 042
     Dates: start: 20210527, end: 20210527
  3. LUMIZYME [Suspect]
     Active Substance: ALGLUCOSIDASE ALFA
     Dosage: LAST DOSE WAS SUPPOSED TO BE DONE ON 06/10/2021 APPOINTMENT WAS RESCHEDULED TO 06/17/2021
     Route: 042
     Dates: start: 20210617
  4. LUMIZYME [Suspect]
     Active Substance: ALGLUCOSIDASE ALFA
     Dosage: 1850 MG, QOW
     Route: 042
     Dates: end: 2024
  5. LUMIZYME [Suspect]
     Active Substance: ALGLUCOSIDASE ALFA
     Dosage: 1650 MG, QOW
     Route: 042
     Dates: start: 202403

REACTIONS (1)
  - Intentional dose omission [Unknown]

NARRATIVE: CASE EVENT DATE: 20210513
